FAERS Safety Report 16241349 (Version 1)
Quarter: 2019Q2

REPORT INFORMATION
  Report Type: Report from Study
  Country: AU (occurrence: AU)
  Receive Date: 20190426
  Receipt Date: 20190426
  Transmission Date: 20190711
  Serious: Yes (Disabling)
  Sender: FDA-Public Use
  Company Number: AU-AMGEN-AUSNI2019031669

PATIENT
  Age: 74 Year
  Sex: Male

DRUGS (3)
  1. AIMOVIG [Suspect]
     Active Substance: ERENUMAB-AOOE
     Indication: MIGRAINE
     Dosage: 140 MG, QMO (EVERY 4 WEEKS)
     Route: 058
     Dates: start: 20190125, end: 20190125
  2. THYROXINE [Concomitant]
     Active Substance: LEVOTHYROXINE
     Indication: HYPOTHYROIDISM
     Dosage: UNK
     Route: 065
  3. VENTOLIN COMPUESTO [Concomitant]
     Indication: ASTHMA
     Dosage: UNK UNK, AS NECESSARY
     Route: 065

REACTIONS (7)
  - Muscle spasms [Unknown]
  - Constipation [Unknown]
  - Fatigue [Recovering/Resolving]
  - Abdominal pain [Unknown]
  - Feeling abnormal [Unknown]
  - Irritability [Unknown]
  - Myalgia [Unknown]

NARRATIVE: CASE EVENT DATE: 20190131
